FAERS Safety Report 23653687 (Version 1)
Quarter: 2024Q1

REPORT INFORMATION
  Report Type: Spontaneous
  Country: US (occurrence: None)
  Receive Date: 20240319
  Receipt Date: 20240319
  Transmission Date: 20240409
  Serious: No
  Sender: FDA-Public Use
  Company Number: None

PATIENT
  Age: 45 Year
  Sex: Female
  Weight: 157 kg

DRUGS (1)
  1. MAGNESIUM [Suspect]
     Active Substance: MAGNESIUM
     Dosage: OTHER FREQUENCY : OTHER;?
     Route: 041

REACTIONS (3)
  - Muscle twitching [None]
  - Infusion related reaction [None]
  - Therapy interrupted [None]

NARRATIVE: CASE EVENT DATE: 20240316
